FAERS Safety Report 24263912 (Version 1)
Quarter: 2024Q3

REPORT INFORMATION
  Report Type: Report from Study
  Country: US (occurrence: US)
  Receive Date: 20240829
  Receipt Date: 20240829
  Transmission Date: 20241017
  Serious: No
  Sender: ALEXION PHARMACEUTICALS
  Company Number: US-ALXN-202408USA001658US

PATIENT
  Sex: Female

DRUGS (1)
  1. STRENSIQ [Suspect]
     Active Substance: ASFOTASE ALFA
     Indication: Product used for unknown indication
     Dosage: UNK
     Route: 065

REACTIONS (9)
  - Carbon dioxide decreased [Unknown]
  - Fall [Unknown]
  - Blood glucose increased [Unknown]
  - Osteopenia [Unknown]
  - Basophil count increased [Unknown]
  - Back pain [Unknown]
  - Tenderness [Unknown]
  - Urine analysis abnormal [Unknown]
  - Culture urine positive [Unknown]

NARRATIVE: CASE EVENT DATE: 20230322
